FAERS Safety Report 7230588-7 (Version None)
Quarter: 2011Q1

REPORT INFORMATION
  Report Type: 
  Country: None (occurrence: None)
  Receive Date: 20110117
  Receipt Date: 20110106
  Transmission Date: 20110831
  Serious: Yes (Hospitalization, Other)
  Sender: FDA-Public Use
  Company Number: PHEH2008US06103

PATIENT
  Sex: Female

DRUGS (5)
  1. ESTRADERM [Suspect]
     Indication: HORMONE REPLACEMENT THERAPY
     Dosage: UNK
     Route: 062
     Dates: start: 19880101, end: 19920811
  2. HALCION [Concomitant]
     Dosage: .25 MG
  3. PREMPRO [Suspect]
     Indication: HORMONE REPLACEMENT THERAPY
     Dosage: UNK
     Dates: start: 19950101, end: 20011205
  4. PROVERA [Suspect]
     Indication: HORMONE REPLACEMENT THERAPY
     Dosage: UNK
     Dates: start: 19880101, end: 19950101
  5. PREMARIN [Suspect]
     Indication: HORMONE REPLACEMENT THERAPY
     Dosage: UNK
     Dates: start: 19920811, end: 19950101

REACTIONS (19)
  - ACTINIC KERATOSIS [None]
  - FEELING ABNORMAL [None]
  - HYPERCHOLESTEROLAEMIA [None]
  - CORONARY ARTERY DISEASE [None]
  - VULVOVAGINAL DRYNESS [None]
  - PSYCHIATRIC SYMPTOM [None]
  - SKIN CANCER [None]
  - BIOPSY BREAST ABNORMAL [None]
  - FEAR OF DISEASE [None]
  - ARTHRITIS [None]
  - BREAST CANCER [None]
  - PAIN [None]
  - ANXIETY [None]
  - RHINITIS ALLERGIC [None]
  - BONE DISORDER [None]
  - LIFE EXPECTANCY SHORTENED [None]
  - OSTEOPENIA [None]
  - SCAR [None]
  - HYPERTENSION [None]
